FAERS Safety Report 4643210-0 (Version None)
Quarter: 2005Q2

REPORT INFORMATION
  Report Type: 
  Country: None (occurrence: None)
  Receive Date: 20050422
  Receipt Date: 20050218
  Transmission Date: 20051028
  Serious: Yes (Other)
  Sender: FDA-Public Use
  Company Number: 2005026476

PATIENT
  Sex: Male

DRUGS (4)
  1. CELEBREX [Suspect]
     Indication: BACK DISORDER
     Dosage: 200 MG (200 MG, 1 IN 1 D), UNKNOWN
     Route: 065
  2. BEXTRA [Suspect]
     Indication: OSTEOARTHRITIS
     Dosage: 1 IN 1 D, UNKNOWN
     Route: 065
  3. ROFECOXIB [Suspect]
     Indication: OSTEOARTHRITIS
  4. ROFECOXIB [Suspect]
     Indication: OSTEOPOROSIS

REACTIONS (8)
  - ARTHROPATHY [None]
  - DRUG EFFECT DECREASED [None]
  - DRUG INEFFECTIVE [None]
  - FAECES DISCOLOURED [None]
  - FLATULENCE [None]
  - HAEMORRHAGE [None]
  - OSTEOARTHRITIS [None]
  - OSTEOPOROSIS [None]
